FAERS Safety Report 4713799-1 (Version None)
Quarter: 2005Q3

REPORT INFORMATION
  Report Type: 
  Country: None (occurrence: None)
  Receive Date: 20050712
  Receipt Date: 20050630
  Transmission Date: 20060218
  Serious: Yes (Death)
  Sender: FDA-Public Use
  Company Number: 2005086027

PATIENT
  Age: 53 Year
  Sex: Male

DRUGS (7)
  1. VIAGRA [Suspect]
     Indication: ERECTILE DYSFUNCTION
     Dosage: UNK (UNK, ONE TIME), ORAL
     Route: 048
     Dates: start: 20050101, end: 20050101
  2. FOLIC ACID [Concomitant]
  3. ASPIRIN [Concomitant]
  4. ROSUVASTATIN (ROSUVASTATIN) [Concomitant]
  5. LISINOPRIL [Concomitant]
  6. LEVOTHYROXINE SODIUM [Concomitant]
  7. ATENOLOL [Concomitant]

REACTIONS (1)
  - DEATH [None]
